FAERS Safety Report 14288492 (Version 1)
Quarter: 2017Q4

REPORT INFORMATION
  Report Type: Report from Study
  Country: US (occurrence: US)
  Receive Date: 20171215
  Receipt Date: 20171215
  Transmission Date: 20180321
  Serious: Yes (Hospitalization)
  Sender: FDA-Public Use
  Company Number: US-ARIAD-2017US008372

PATIENT
  Age: 24 Year
  Sex: Female

DRUGS (1)
  1. PONATINIB [Suspect]
     Active Substance: PONATINIB
     Indication: CHRONIC MYELOID LEUKAEMIA
     Dosage: 30 MG, QD
     Route: 048
     Dates: start: 201612

REACTIONS (16)
  - Abdominal discomfort [Unknown]
  - Pain in extremity [Unknown]
  - Treatment noncompliance [Unknown]
  - Abdominal pain [Unknown]
  - Dyspnoea [Unknown]
  - Headache [Unknown]
  - Thrombocytosis [Unknown]
  - Asthenia [Unknown]
  - Nausea [Unknown]
  - Malaise [Unknown]
  - Blood follicle stimulating hormone increased [Unknown]
  - Back pain [Recovering/Resolving]
  - Intra-abdominal fluid collection [Unknown]
  - Hot flush [Unknown]
  - Bile duct stent removal [Unknown]
  - Urinary tract infection [Unknown]

NARRATIVE: CASE EVENT DATE: 201703
